FAERS Safety Report 10495684 (Version 1)
Quarter: 2014Q4

REPORT INFORMATION
  Report Type: Report from Study
  Country: JP (occurrence: JP)
  Receive Date: 20141003
  Receipt Date: 20141003
  Transmission Date: 20150528
  Serious: Yes (Death)
  Sender: FDA-Public Use
  Company Number: JP-BRISTOL-MYERS SQUIBB COMPANY-21448477

PATIENT
  Age: 83 Year
  Sex: Male
  Weight: 51 kg

DRUGS (8)
  1. ALDACTONE [Concomitant]
     Active Substance: SPIRONOLACTONE
  2. LASIX [Concomitant]
     Active Substance: FUROSEMIDE
  3. SAMSCA [Concomitant]
     Active Substance: TOLVAPTAN
  4. ELIQUIS [Suspect]
     Active Substance: APIXABAN
     Indication: THROMBOSIS PROPHYLAXIS
     Route: 048
     Dates: start: 20140110
  5. ASPIRIN. [Concomitant]
     Active Substance: ASPIRIN
     Indication: THROMBOSIS PROPHYLAXIS
  6. MAINTATE [Concomitant]
     Active Substance: BISOPROLOL FUMARATE
  7. DIART [Concomitant]
     Active Substance: AZOSEMIDE
  8. PIMOBENDAN [Concomitant]
     Active Substance: PIMOBENDAN

REACTIONS (1)
  - Cardiac failure [Fatal]
